FAERS Safety Report 16032313 (Version 1)
Quarter: 2019Q1

REPORT INFORMATION
  Report Type: Spontaneous
  Country: US (occurrence: US)
  Receive Date: 20190304
  Receipt Date: 20190304
  Transmission Date: 20190418
  Serious: No
  Sender: FDA-Public Use
  Company Number: US-009507513-1902USA008908

PATIENT
  Age: 34 Year
  Sex: Female
  Weight: 58.96 kg

DRUGS (2)
  1. NUVARING [Suspect]
     Active Substance: ETHINYL ESTRADIOL\ETONOGESTREL
     Indication: CONTRACEPTION
     Dosage: STRENGTH: 0.015/0.12 (UNIT NOT REPORTED). 1 RING, 3 WEEKS ON AND ONE RING-FREE WEEK
     Route: 067
     Dates: start: 20190106
  2. NUVARING [Suspect]
     Active Substance: ETHINYL ESTRADIOL\ETONOGESTREL
     Dosage: STRENGTH: 0.015/0.12 (UNIT NOT REPORTED). 1 RING, 3 WEEKS ON AND ONE RING-FREE WEEK
     Route: 067
     Dates: start: 201702

REACTIONS (2)
  - Urinary tract infection [Not Recovered/Not Resolved]
  - Metrorrhagia [Not Recovered/Not Resolved]

NARRATIVE: CASE EVENT DATE: 20190126
